FAERS Safety Report 4444769-9 (Version None)
Quarter: 2004Q3

REPORT INFORMATION
  Report Type: 
  Country: None (occurrence: None)
  Receive Date: 20040909
  Receipt Date: 20040826
  Transmission Date: 20050211
  Serious: Yes (Other)
  Sender: FDA-Public Use
  Company Number: US-AMGEN-PRA088414

PATIENT
  Sex: Female

DRUGS (6)
  1. PEGFILGRASTIM [Suspect]
     Indication: CHEMOTHERAPY
     Route: 058
     Dates: start: 20040623, end: 20040804
  2. RITUXAN [Suspect]
  3. CYCLOPHOSPHAMIDE [Suspect]
  4. ADRIAMYCIN PFS [Suspect]
  5. VINCRISTINE [Suspect]
  6. PREDNISONE [Suspect]

REACTIONS (1)
  - ALVEOLITIS ALLERGIC [None]
